FAERS Safety Report 23778235 (Version 2)
Quarter: 2024Q2

REPORT INFORMATION
  Report Type: Spontaneous
  Country: CN (occurrence: CN)
  Receive Date: 20240424
  Receipt Date: 20240425
  Transmission Date: 20240716
  Serious: Yes (Life-Threatening, Hospitalization, Other)
  Sender: FDA-Public Use
  Company Number: CN-BAYER-2024A060405

PATIENT
  Age: 62 Year
  Sex: Male

DRUGS (3)
  1. SORAFENIB [Suspect]
     Active Substance: SORAFENIB
     Indication: Hepatocellular carcinoma
     Dosage: 0.4 G, BID
     Dates: start: 20210701, end: 20220219
  2. SORAFENIB [Suspect]
     Active Substance: SORAFENIB
     Indication: Targeted cancer therapy
  3. ENTECAVIR [Concomitant]
     Active Substance: ENTECAVIR
     Indication: Antiviral treatment
     Dosage: 0.5 MG, QD

REACTIONS (4)
  - Acute myocardial infarction [Recovering/Resolving]
  - Coronary artery stenosis [Recovering/Resolving]
  - Blood pressure increased [None]
  - Ventricular arrhythmia [Recovering/Resolving]

NARRATIVE: CASE EVENT DATE: 20210701
